FAERS Safety Report 8089081-4 (Version None)
Quarter: 2012Q1

REPORT INFORMATION
  Report Type: 
  Country: None (occurrence: None)
  Receive Date: 20120128
  Receipt Date: 20110624
  Transmission Date: 20120608
  Serious: No
  Sender: FDA-Public Use
  Company Number: US-ABBOTT-11P-163-0834456-00

PATIENT
  Sex: Female
  Weight: 61.29 kg

DRUGS (4)
  1. FOLIC ACID [Concomitant]
     Indication: VITAMIN SUPPLEMENTATION
  2. IBUPROFEN [Concomitant]
     Indication: PAIN
  3. HUMIRA [Suspect]
     Indication: RHEUMATOID ARTHRITIS
     Route: 058
     Dates: start: 20100908
  4. METHOTREXATE [Concomitant]
     Indication: RHEUMATOID ARTHRITIS

REACTIONS (1)
  - ALOPECIA [None]
